FAERS Safety Report 20991165 (Version 1)
Quarter: 2022Q2

REPORT INFORMATION
  Report Type: Spontaneous
  Country: US (occurrence: US)
  Receive Date: 20220622
  Receipt Date: 20220622
  Transmission Date: 20220721
  Serious: No
  Sender: FDA-Public Use
  Company Number: US-GSKCCFUS-Case-01411364_AE-81253

PATIENT
  Sex: Male

DRUGS (2)
  1. INCRUSE ELLIPTA [Suspect]
     Active Substance: UMECLIDINIUM BROMIDE
     Indication: Product used for unknown indication
     Dosage: UNK
     Dates: start: 2022
  2. ALBUTEROL [Concomitant]
     Active Substance: ALBUTEROL
     Indication: Product used for unknown indication
     Dosage: UNK, INHALER MANY TIMES A DAY, VIA NEBULIZER 4 TIMES DAILY

REACTIONS (2)
  - Wheezing [Unknown]
  - Drug ineffective [Unknown]
